FAERS Safety Report 12724797 (Version 1)
Quarter: 2016Q3

REPORT INFORMATION
  Report Type: Spontaneous
  Country: US (occurrence: US)
  Receive Date: 20160908
  Receipt Date: 20160908
  Transmission Date: 20161109
  Serious: Yes (Hospitalization)
  Sender: FDA-Public Use
  Company Number: US-WARNER CHILCOTT, LLC-1057165

PATIENT
  Sex: Male

DRUGS (1)
  1. ASACOL HD [Suspect]
     Active Substance: MESALAMINE
     Route: 048

REACTIONS (1)
  - Infection [Unknown]
